FAERS Safety Report 6524789-0 (Version None)
Quarter: 2010Q1

REPORT INFORMATION
  Report Type: 
  Country: None (occurrence: None)
  Receive Date: 20100104
  Receipt Date: 20091223
  Transmission Date: 20100710
  Serious: Yes (Other)
  Sender: FDA-Public Use
  Company Number: TR-ELI_LILLY_AND_COMPANY-TR200912005389

PATIENT

DRUGS (4)
  1. HUMULIN R [Suspect]
     Indication: GESTATIONAL DIABETES
     Dosage: 10 IU, EACH MORNING
     Route: 064
     Dates: start: 20090101, end: 20091220
  2. HUMULIN R [Suspect]
     Dosage: 12 IU, OTHER
     Route: 064
     Dates: start: 20090101, end: 20091220
  3. HUMULIN R [Suspect]
     Dosage: 14 IU, EACH EVENING
     Route: 064
     Dates: start: 20090101, end: 20091220
  4. HUMULIN N [Suspect]
     Indication: GESTATIONAL DIABETES
     Dosage: 12 U, DAILY (1/D)
     Route: 064
     Dates: start: 20090101, end: 20091220

REACTIONS (4)
  - DRUG EXPOSURE DURING PREGNANCY [None]
  - PREMATURE BABY [None]
  - PULMONARY APLASIA [None]
  - SMALL FOR DATES BABY [None]
